FAERS Safety Report 5266473-X (Version None)
Quarter: 2007Q1

REPORT INFORMATION
  Report Type: 
  Country: None (occurrence: None)
  Receive Date: 20070315
  Receipt Date: 20070305
  Transmission Date: 20070707
  Serious: Yes (Hospitalization)
  Sender: FDA-Public Use
  Company Number: US-ABBOTT-07P-163-0361035-00

PATIENT
  Sex: Male

DRUGS (9)
  1. VICODIN [Suspect]
     Indication: PAIN
     Route: 048
     Dates: start: 20070101, end: 20070207
  2. DILAUDID [Suspect]
     Indication: PAIN
     Route: 048
     Dates: start: 20070101, end: 20070209
  3. OXYCODONE HCL [Suspect]
     Indication: PAIN
     Route: 048
     Dates: start: 20070101, end: 20070209
  4. FENTANYL [Suspect]
     Indication: PAIN
     Route: 048
     Dates: start: 20070101, end: 20070209
  5. ZOLPIDEM TARTRATE [Suspect]
     Indication: INSOMNIA
     Route: 048
     Dates: start: 20070101, end: 20070209
  6. COUMADIN [Suspect]
     Indication: DRUG USE FOR UNKNOWN INDICATION
     Route: 048
     Dates: start: 20070101
  7. ANTIDEPRESSANTS [Suspect]
     Indication: DEPRESSION
     Route: 065
     Dates: start: 20070101, end: 20070209
  8. MUSCLE RELAXANTS [Suspect]
     Indication: MUSCLE SPASMS
     Route: 065
     Dates: start: 20070101, end: 20070209
  9. PROPACET 100 [Suspect]
     Indication: PAIN
     Route: 048
     Dates: start: 20070207, end: 20070209

REACTIONS (6)
  - DYSKINESIA [None]
  - HALLUCINATION [None]
  - HEART RATE INCREASED [None]
  - HYPERHIDROSIS [None]
  - INFECTION [None]
  - WOUND INFECTION STAPHYLOCOCCAL [None]
